FAERS Safety Report 24151722 (Version 2)
Quarter: 2024Q3

REPORT INFORMATION
  Report Type: Report from Study
  Country: BR (occurrence: BR)
  Receive Date: 20240730
  Receipt Date: 20240918
  Transmission Date: 20241017
  Serious: Yes (Other)
  Sender: EMD SERONO INC
  Company Number: BR-Merck Healthcare KGaA-2024040581

PATIENT
  Sex: Female

DRUGS (3)
  1. INTERFERON BETA-1A [Suspect]
     Active Substance: INTERFERON BETA-1A
     Indication: Multiple sclerosis
     Route: 058
     Dates: start: 20230405
  2. CLONIDINE [Concomitant]
     Active Substance: CLONIDINE
     Indication: Product used for unknown indication
     Dosage: EVERY NIGHT
     Dates: start: 2021
  3. DIPYRONE [Concomitant]
     Active Substance: DIPYRONE
     Indication: Pain
     Dates: start: 2021

REACTIONS (1)
  - Multiple sclerosis relapse [Not Recovered/Not Resolved]
